FAERS Safety Report 8661487 (Version 8)
Quarter: 2012Q4

REPORT INFORMATION
  Report Type: Report from Study
  Country: JP (occurrence: JP)
  Receive Date: 20120712
  Receipt Date: 20120905
  Transmission Date: 20130627
  Serious: Yes (Hospitalization)
  Sender: FDA-Public Use
  Company Number: JP-UCBSA-061097

PATIENT
  Age: 62 Year
  Sex: Female

DRUGS (17)
  1. CERTOLIZUMAB PEGOL [Suspect]
     Indication: RHEUMATOID ARTHRITIS
     Route: 058
     Dates: start: 20120509, end: 20120620
  2. RHEUMATREX [Suspect]
     Indication: RHEUMATOID ARTHRITIS
     Route: 048
     Dates: start: 20120621, end: 20120622
  3. RHEUMATREX [Suspect]
     Indication: RHEUMATOID ARTHRITIS
     Route: 048
     Dates: start: 20120510, end: 20120621
  4. RHEUMATREX [Suspect]
     Indication: RHEUMATOID ARTHRITIS
     Route: 048
     Dates: start: 20120802
  5. RHEUMATREX [Suspect]
     Indication: RHEUMATOID ARTHRITIS
     Route: 048
     Dates: start: 20120809
  6. FOLIC ACID [Concomitant]
     Dates: start: 20120512, end: 20120623
  7. TAUROMIN [Concomitant]
     Dosage: DAILY DOSE-12 TAB
     Dates: start: 1985
  8. ASCORBIC ACID_CALCIUM PANTOTHENATE [Concomitant]
     Dosage: DAILY DOSE- 3 TAB
     Dates: start: 20110329
  9. L-CYSTEINE [Concomitant]
     Dosage: DAILY DOSE-240 MG
     Dates: start: 20110329
  10. HYDROQUINONE [Concomitant]
     Dosage: QS
     Dates: start: 20110329
  11. TRANEXAMIC ACID [Concomitant]
     Dosage: DAILY DOSE-750 MG
     Dates: start: 20110329
  12. ETIZOLAM [Concomitant]
     Dosage: DAILY DOSE-1 MG
     Dates: start: 20120417
  13. ETODOLAC [Concomitant]
     Dosage: DAILY DOSE-400 MG
     Dates: start: 20120315
  14. MISOPROSTOL [Concomitant]
     Dosage: DAILY DOSE-400 MCG
     Dates: start: 20120417
  15. SODIUM HYALURONATE [Concomitant]
     Dosage: QS
     Dates: start: 20100820
  16. SENNOSIDE [Concomitant]
     Dosage: DAILY DOSE-QS
     Dates: start: 20120522
  17. KETOTIFEN FUMARATE [Concomitant]
     Dosage: DAILY DOSE-QS
     Dates: start: 20100922

REACTIONS (1)
  - Pneumocystis jiroveci pneumonia [Recovered/Resolved]
